FAERS Safety Report 10103273 (Version 1)
Quarter: 2014Q2

REPORT INFORMATION
  Report Type: Spontaneous
  Country: CH (occurrence: CH)
  Receive Date: 20140424
  Receipt Date: 20140424
  Transmission Date: 20141212
  Serious: Yes (Hospitalization)
  Sender: FDA-Public Use
  Company Number: CH-GLAXOSMITHKLINE-B0988242A

PATIENT
  Age: 22 Year
  Sex: Male

DRUGS (5)
  1. TROBALT [Suspect]
     Indication: PARTIAL SEIZURES
     Dosage: 400MG THREE TIMES PER DAY
     Route: 048
     Dates: end: 201305
  2. FYCOMPA [Suspect]
     Indication: PARTIAL SEIZURES
     Dosage: 4MG PER DAY
     Route: 048
     Dates: start: 20130429
  3. PHENHYDAN [Suspect]
     Indication: PARTIAL SEIZURES
     Dosage: 250MG PER DAY
     Route: 048
  4. TRILEPTAL [Suspect]
     Indication: PARTIAL SEIZURES
     Dosage: 400MG THREE TIMES PER DAY
     Route: 048
  5. RIVOTRIL [Concomitant]
     Indication: PARTIAL SEIZURES
     Dosage: 4MG PER DAY
     Route: 048

REACTIONS (4)
  - Status epilepticus [Recovered/Resolved]
  - Drug interaction [Unknown]
  - Drug level decreased [Recovered/Resolved]
  - Anticonvulsant drug level below therapeutic [Recovering/Resolving]
